FAERS Safety Report 16011480 (Version 2)
Quarter: 2019Q2

REPORT INFORMATION
  Report Type: Spontaneous
  Country: US (occurrence: US)
  Receive Date: 20190227
  Receipt Date: 20190405
  Transmission Date: 20190711
  Serious: No
  Sender: FDA-Public Use
  Company Number: US-TEVA-2019-US-1006570

PATIENT
  Age: 71 Year
  Sex: Male

DRUGS (3)
  1. MONTELUKAST [Concomitant]
     Active Substance: MONTELUKAST SODIUM
  2. VENTOLIN [Concomitant]
     Active Substance: ALBUTEROL SULFATE
     Indication: ASTHMA
     Dosage: USING VENTOLIN FOR ABOUT 3 YEARS
     Dates: end: 20190126
  3. PROAIR HFA [Suspect]
     Active Substance: ALBUTEROL SULFATE
     Indication: ASTHMA
     Dosage: 2 PUFFS IN THE MORNING, 2 PUFFS IN THE AFTERNOON IF NEEDED, 2 PUFFS BEFORE BED
     Route: 065
     Dates: start: 20190126

REACTIONS (3)
  - Product dispensing error [Unknown]
  - Product substitution issue [Unknown]
  - Therapeutic product effect decreased [Unknown]

NARRATIVE: CASE EVENT DATE: 20190126
